FAERS Safety Report 4748275-3 (Version None)
Quarter: 2005Q3

REPORT INFORMATION
  Report Type: 
  Country: None (occurrence: None)
  Receive Date: 20050815
  Receipt Date: 20050628
  Transmission Date: 20060218
  Serious: No
  Sender: FDA-Public Use
  Company Number: USA0506100601

PATIENT
  Age: 50 Year
  Sex: Female

DRUGS (10)
  1. CIALIS [Suspect]
     Indication: RAYNAUD'S PHENOMENON
     Dosage: 20 MG
     Dates: start: 20050509
  2. ARAVA [Concomitant]
  3. EXTRA STRENGTH ACETAMINOPHEN (EXRA STRENGTH ACETAMINOPHEN) [Concomitant]
  4. NEXIUM [Concomitant]
  5. PRILOSEC [Concomitant]
  6. DEMADEX [Concomitant]
  7. TYLENOL [Concomitant]
  8. ALLEGRA-D [Concomitant]
  9. FLONASE [Concomitant]
  10. MORPHINE [Concomitant]

REACTIONS (7)
  - COCCYDYNIA [None]
  - DIZZINESS [None]
  - EPISTAXIS [None]
  - HEADACHE [None]
  - NAUSEA [None]
  - OEDEMA PERIPHERAL [None]
  - VERTIGO [None]
